FAERS Safety Report 20661178 (Version 1)
Quarter: 2022Q1

REPORT INFORMATION
  Report Type: Report from Study
  Country: US (occurrence: US)
  Receive Date: 20220331
  Receipt Date: 20220331
  Transmission Date: 20220424
  Serious: No
  Sender: FDA-Public Use
  Company Number: US-ACADIA PHARMACEUTICALS INC.-ACA-2022-PIM-000809

PATIENT
  Age: 76 Year
  Sex: Female
  Weight: 63 kg

DRUGS (13)
  1. NUPLAZID [Suspect]
     Active Substance: PIMAVANSERIN TARTRATE
     Indication: Hallucination
     Dosage: 34 MILLIGRAM, QD
     Route: 048
     Dates: start: 20220225, end: 202203
  2. NUPLAZID [Suspect]
     Active Substance: PIMAVANSERIN TARTRATE
     Indication: Delusion
  3. NUPLAZID [Suspect]
     Active Substance: PIMAVANSERIN TARTRATE
     Indication: Parkinson^s disease psychosis
  4. CARBIDOPA\LEVODOPA [Concomitant]
     Active Substance: CARBIDOPA\LEVODOPA
  5. LEXAPRO [Concomitant]
     Active Substance: ESCITALOPRAM OXALATE
  6. GABAPENTIN [Concomitant]
     Active Substance: GABAPENTIN
  7. ALLOPURINOL [Concomitant]
     Active Substance: ALLOPURINOL
  8. AMANTADINE [Concomitant]
     Active Substance: AMANTADINE
  9. VITAMIN B12 [Concomitant]
     Active Substance: CYANOCOBALAMIN
  10. FOLIC ACID [Concomitant]
     Active Substance: FOLIC ACID
  11. AMLODIPINE [Concomitant]
     Active Substance: AMLODIPINE BESYLATE
  12. OMEPRAZOLE [Concomitant]
     Active Substance: OMEPRAZOLE
  13. SENNA PLUS [SENNA ALEXANDRINA] [Concomitant]

REACTIONS (8)
  - Delusion [Not Recovered/Not Resolved]
  - Palpitations [Not Recovered/Not Resolved]
  - Vertigo [Not Recovered/Not Resolved]
  - Panic attack [Not Recovered/Not Resolved]
  - Hallucination [Unknown]
  - Nausea [Not Recovered/Not Resolved]
  - Hallucination, auditory [Not Recovered/Not Resolved]
  - Dyspnoea [Not Recovered/Not Resolved]

NARRATIVE: CASE EVENT DATE: 20220301
